FAERS Safety Report 12584242 (Version 1)
Quarter: 2016Q3

REPORT INFORMATION
  Report Type: Spontaneous
  Country: US (occurrence: US)
  Receive Date: 20160722
  Receipt Date: 20160722
  Transmission Date: 20161109
  Serious: No
  Sender: FDA-Public Use
  Company Number: US-GLAXOSMITHKLINE-US2016104176

PATIENT
  Age: 89 Year
  Sex: Female

DRUGS (2)
  1. VOLTAREN [Suspect]
     Active Substance: DICLOFENAC SODIUM
     Indication: UPPER LIMB FRACTURE
     Dosage: UNK
  2. VOLTAREN [Suspect]
     Active Substance: DICLOFENAC SODIUM
     Indication: ARTHRITIS

REACTIONS (10)
  - Fall [Unknown]
  - Limb discomfort [Unknown]
  - Splint application [Unknown]
  - Emergency care examination [Unknown]
  - Application site pain [Unknown]
  - Pain in extremity [Unknown]
  - Drug administered at inappropriate site [Unknown]
  - Ligament sprain [Unknown]
  - Feeling abnormal [Unknown]
  - Off label use [Unknown]

NARRATIVE: CASE EVENT DATE: 201606
